FAERS Safety Report 10362876 (Version 1)
Quarter: 2014Q3

REPORT INFORMATION
  Report Type: Spontaneous
  Country: US (occurrence: None)
  Receive Date: 20140804
  Receipt Date: 20140804
  Transmission Date: 20150326
  Serious: No
  Sender: FDA-Public Use
  Company Number: None

PATIENT
  Age: 74 Year
  Sex: Female

DRUGS (32)
  1. ZOLOFT [Concomitant]
     Active Substance: SERTRALINE HYDROCHLORIDE
  2. CIPRO [Concomitant]
     Active Substance: CIPROFLOXACIN HYDROCHLORIDE
  3. GAS RELIEF [Concomitant]
     Active Substance: DIMETHICONE
  4. PROBIOTIC [Concomitant]
     Active Substance: PROBIOTICS NOS
  5. ACTONEL [Concomitant]
     Active Substance: RISEDRONATE SODIUM
  6. SILADENE [Concomitant]
  7. PRILOSEC [Concomitant]
     Active Substance: OMEPRAZOLE MAGNESIUM
  8. COLACE [Concomitant]
     Active Substance: DOCUSATE SODIUM
  9. SENNAKOT [Concomitant]
  10. CRANBERRY. [Concomitant]
     Active Substance: CRANBERRY
  11. METAMUCIL [Concomitant]
     Active Substance: PLANTAGO SEED
  12. FORTEO [Suspect]
     Active Substance: TERIPARATIDE
     Indication: PATHOLOGICAL FRACTURE
     Route: 058
     Dates: start: 20130614
  13. FLEXERIL [Concomitant]
     Active Substance: CYCLOBENZAPRINE HYDROCHLORIDE
  14. ALOE VESTA [Concomitant]
  15. LEVOXYL [Concomitant]
     Active Substance: LEVOTHYROXINE SODIUM
  16. NORVASC [Concomitant]
     Active Substance: AMLODIPINE BESYLATE
  17. CRESTOR [Concomitant]
     Active Substance: ROSUVASTATIN CALCIUM
  18. COUMADIN [Concomitant]
     Active Substance: WARFARIN SODIUM
  19. GABAPENTIN. [Concomitant]
     Active Substance: GABAPENTIN
  20. MIRALAX [Concomitant]
     Active Substance: POLYETHYLENE GLYCOL 3350
  21. CENTRUM SILVER [Concomitant]
     Active Substance: VITAMINS
  22. OSCAL [Concomitant]
     Active Substance: CALCIUM CARBONATE
  23. FLEXAMIN [Concomitant]
  24. MAYPO CREAM [Concomitant]
  25. CORN STARCH POWDER [Concomitant]
  26. ZEASORB POWDER [Concomitant]
  27. CLOBETASOL CLARITIN [Concomitant]
  28. BEANO [Concomitant]
     Active Substance: ASPERGILLUS NIGER .ALPHA.-GALACTOSIDASE
  29. SWEEN CREAM [Concomitant]
  30. FOSAMAX [Concomitant]
     Active Substance: ALENDRONATE SODIUM
  31. ZESTRIL [Concomitant]
     Active Substance: LISINOPRIL
  32. VITAMIN D [Concomitant]
     Active Substance: CHOLECALCIFEROL

REACTIONS (2)
  - Calculus bladder [None]
  - Bladder mass [None]

NARRATIVE: CASE EVENT DATE: 20140731
